FAERS Safety Report 10404203 (Version 1)
Quarter: 2014Q1

REPORT INFORMATION
  Report Type: Spontaneous
  Country: US (occurrence: None)
  Receive Date: 20131226
  Receipt Date: 20131226
  Transmission Date: 20141002
  Serious: Yes (Other)
  Sender: FDA-Public Use
  Company Number: PHEH2013US003081

PATIENT
  Age: 45 Year
  Sex: Male

DRUGS (1)
  1. GILENYA (FINGOLIMOD) CAPSULE [Suspect]
     Route: 048

REACTIONS (1)
  - Heart rate decreased [None]
